FAERS Safety Report 6954252-4 (Version None)
Quarter: 2010Q3

REPORT INFORMATION
  Report Type: 
  Country: None (occurrence: None)
  Receive Date: 20100829
  Receipt Date: 20100712
  Transmission Date: 20110219
  Serious: No
  Sender: FDA-Public Use
  Company Number: US-ABBOTT-10P-163-0656612-00

PATIENT
  Sex: Female
  Weight: 56.75 kg

DRUGS (3)
  1. NIASPAN [Suspect]
     Indication: HYPERLIPIDAEMIA
     Dates: start: 20090701
  2. NIASPAN [Suspect]
     Dosage: 1 IN THE MORNING + 1 NIGHTLY
     Route: 048
  3. FISH OIL [Concomitant]
     Indication: VITAMIN SUPPLEMENTATION

REACTIONS (1)
  - NAUSEA [None]
